FAERS Safety Report 23314224 (Version 1)
Quarter: 2023Q4

REPORT INFORMATION
  Report Type: Spontaneous
  Country: DK (occurrence: DK)
  Receive Date: 20231219
  Receipt Date: 20231219
  Transmission Date: 20240109
  Serious: Yes (Hospitalization)
  Sender: FDA-Public Use
  Company Number: None

PATIENT
  Age: 57 Year
  Sex: Female
  Weight: 65 kg

DRUGS (4)
  1. PAXLOVID [Interacting]
     Active Substance: NIRMATRELVIR\RITONAVIR
     Indication: COVID-19 treatment
     Dosage: 6 DF, DAILY
     Route: 048
     Dates: start: 20231126, end: 20231128
  2. TACROLIMUS [Interacting]
     Active Substance: TACROLIMUS
     Indication: Solid organ transplant rejection
     Dosage: 2 MG, 1X/DAY
     Route: 048
     Dates: start: 20230523
  3. TACROLIMUS [Interacting]
     Active Substance: TACROLIMUS
     Indication: Solid organ transplant rejection
     Dosage: 0.5 MG, 1X/DAY
     Route: 048
     Dates: start: 20230523
  4. MYFENAX [Concomitant]
     Active Substance: MYCOPHENOLATE MOFETIL
     Indication: Immunosuppressant drug therapy
     Dosage: UNK
     Dates: start: 20191120

REACTIONS (3)
  - Drug interaction [Not Recovered/Not Resolved]
  - Toxicity to various agents [Unknown]
  - Renal impairment [Not Recovered/Not Resolved]

NARRATIVE: CASE EVENT DATE: 20231128
